FAERS Safety Report 21324988 (Version 5)
Quarter: 2024Q1

REPORT INFORMATION
  Report Type: Other
  Country: JP (occurrence: JP)
  Receive Date: 20220912
  Receipt Date: 20240117
  Transmission Date: 20240410
  Serious: Yes (Other)
  Sender: FDA-Public Use
  Company Number: JP-CHUGAI-2022027537

PATIENT
  Age: 37 Year
  Sex: Male
  Weight: 56 kg

DRUGS (6)
  1. TECENTRIQ [Suspect]
     Active Substance: ATEZOLIZUMAB
     Indication: Hepatocellular carcinoma
     Dosage: 1200 MILLIGRAM, ONCE/3WEEKS
     Route: 041
     Dates: start: 20210325, end: 20220615
  2. AVASTIN [Suspect]
     Active Substance: BEVACIZUMAB
     Indication: Hepatocellular carcinoma
     Dosage: 840 MILLIGRAM, ONCE/3WEEKS
     Route: 041
     Dates: start: 20210325, end: 20220615
  3. BARACLUDE [Concomitant]
     Active Substance: ENTECAVIR
     Dosage: UNK
     Route: 048
     Dates: start: 20200114
  4. AMLODIPINE BESYLATE [Concomitant]
     Active Substance: AMLODIPINE BESYLATE
     Dosage: UNK
     Route: 048
  5. NAFTOPIDIL [Concomitant]
     Active Substance: NAFTOPIDIL
     Dosage: UNK
     Route: 048
     Dates: start: 20220216
  6. MIRABEGRON [Concomitant]
     Active Substance: MIRABEGRON
     Dosage: UNK
     Route: 048
     Dates: start: 20220302

REACTIONS (4)
  - Eosinophil count increased [Recovered/Resolved]
  - Hypothyroidism [Recovered/Resolved]
  - Hypopituitarism [Recovering/Resolving]
  - Adrenal insufficiency [Recovering/Resolving]

NARRATIVE: CASE EVENT DATE: 20220216
